FAERS Safety Report 4484042-6 (Version None)
Quarter: 2004Q4

REPORT INFORMATION
  Report Type: 
  Country: None (occurrence: None)
  Receive Date: 20041025
  Receipt Date: 20030605
  Transmission Date: 20050328
  Serious: Yes (Hospitalization, Other)
  Sender: FDA-Public Use
  Company Number: US-MERCK-0306USA00925

PATIENT
  Age: 65 Year
  Sex: Female

DRUGS (4)
  1. VIOXX [Suspect]
     Route: 048
  2. PREDNISONE [Concomitant]
     Route: 065
  3. [THERAPY UNSPECIFIED] [Concomitant]
     Route: 065
  4. ZANTAC [Concomitant]
     Route: 048

REACTIONS (12)
  - ABDOMINAL ADHESIONS [None]
  - ADVERSE EVENT [None]
  - ANGINA PECTORIS [None]
  - BLOOD PRESSURE INCREASED [None]
  - BLOOD PRESSURE SYSTOLIC INCREASED [None]
  - CHRONIC OBSTRUCTIVE AIRWAYS DISEASE EXACERBATED [None]
  - CONVULSION [None]
  - DIVERTICULUM INTESTINAL [None]
  - DIZZINESS [None]
  - HIATUS HERNIA [None]
  - HYPOCHROMIC ANAEMIA [None]
  - PELVIC PERITONEAL ADHESIONS [None]
